FAERS Safety Report 16058276 (Version 1)
Quarter: 2019Q1

REPORT INFORMATION
  Report Type: Spontaneous
  Country: CA (occurrence: CA)
  Receive Date: 20190311
  Receipt Date: 20190311
  Transmission Date: 20190418
  Serious: Yes (Other)
  Sender: FDA-Public Use
  Company Number: CA-PFIZER INC-2019103118

PATIENT
  Age: 63 Year
  Sex: Female

DRUGS (2)
  1. IBRANCE [Suspect]
     Active Substance: PALBOCICLIB
     Indication: BREAST CANCER
     Dosage: UNK
     Dates: start: 201701
  2. LETROZOLE. [Concomitant]
     Active Substance: LETROZOLE
     Dosage: UNK
     Dates: start: 201701

REACTIONS (4)
  - Pruritus [Unknown]
  - Arthralgia [Unknown]
  - Intracranial aneurysm [Unknown]
  - Hypertension [Unknown]
